FAERS Safety Report 9378533 (Version 1)
Quarter: 2013Q3

REPORT INFORMATION
  Report Type: Spontaneous
  Country: US (occurrence: US)
  Receive Date: 20130702
  Receipt Date: 20130702
  Transmission Date: 20140515
  Serious: No
  Sender: FDA-Public Use
  Company Number: US-ASTRAZENECA-2013SE40837

PATIENT
  Age: 75 Year
  Sex: Male
  Weight: 73.9 kg

DRUGS (5)
  1. METOPROLOL [Suspect]
     Indication: BLOOD PRESSURE ABNORMAL
     Route: 048
     Dates: start: 2009
  2. OMEPRAZOLE ER (NON AZ) [Suspect]
     Indication: ABDOMINAL PAIN UPPER
     Route: 048
     Dates: start: 20130530
  3. XANAX [Concomitant]
     Indication: SLEEP DISORDER
     Route: 048
     Dates: start: 201009
  4. FLONASE [Concomitant]
     Indication: SINUS DISORDER
     Dosage: 50 MCG PRN
     Route: 045
     Dates: start: 201101
  5. SIMVASTATIN [Concomitant]
     Indication: BLOOD CHOLESTEROL ABNORMAL
     Route: 048
     Dates: start: 2009

REACTIONS (4)
  - Dizziness [Not Recovered/Not Resolved]
  - Headache [Not Recovered/Not Resolved]
  - Abdominal discomfort [Not Recovered/Not Resolved]
  - Drug ineffective [Not Recovered/Not Resolved]
